FAERS Safety Report 4839155-3 (Version None)
Quarter: 2005Q4

REPORT INFORMATION
  Report Type: 
  Country: None (occurrence: None)
  Receive Date: 20051031
  Receipt Date: 20050726
  Transmission Date: 20060501
  Serious: No
  Sender: FDA-Public Use
  Company Number: 200516656US

PATIENT
  Age: 53 Year
  Sex: Female
  Weight: 67.7 kg

DRUGS (3)
  1. KETEK [Suspect]
     Indication: SINUSITIS
     Dosage: 400MG QD PO
     Route: 048
     Dates: start: 20050722, end: 20050722
  2. XANAX [Concomitant]
  3. VITAMINS NOS (VITAMINS NOS) [Concomitant]

REACTIONS (6)
  - BODY TEMPERATURE DECREASED [None]
  - COLD SWEAT [None]
  - DIARRHOEA [None]
  - FEELING COLD [None]
  - MALAISE [None]
  - VOMITING [None]
